FAERS Safety Report 8596758-0 (Version None)
Quarter: 2012Q3

REPORT INFORMATION
  Report Type: 
  Country: None (occurrence: None)
  Receive Date: 20120815
  Receipt Date: 20120808
  Transmission Date: 20120928
  Serious: Yes (Hospitalization, Other)
  Sender: FDA-Public Use
  Company Number: US-PFIZER INC-2012150356

PATIENT
  Age: 58 Year
  Sex: Female
  Weight: 81.633 kg

DRUGS (6)
  1. HYDROCODONE BITARTRATE + ACETAMINOPHEN [Suspect]
     Indication: ARTHRITIS
     Dosage: 7.5-650 MG, 3X/DAY
     Dates: start: 20110101
  2. HYDROCODONE BITARTRATE + ACETAMINOPHEN [Suspect]
     Indication: FIBROMYALGIA
  3. DETROL LA [Suspect]
     Indication: URGE INCONTINENCE
     Dosage: UNK, 2X/DAY
  4. CODEINE SULFATE [Suspect]
     Dosage: UNK
  5. DOXEPIN [Concomitant]
     Dosage: 30 MG, UNK
  6. OXYBUTYNIN CHLORIDE [Suspect]
     Indication: URGE INCONTINENCE
     Dosage: 5 MG, 3X/DAY

REACTIONS (14)
  - BRAIN INJURY [None]
  - ACCIDENT [None]
  - UPPER LIMB FRACTURE [None]
  - HYPERSENSITIVITY [None]
  - JAW FRACTURE [None]
  - CATARACT [None]
  - DEMENTIA [None]
  - HEART RATE IRREGULAR [None]
  - CHRONIC OBSTRUCTIVE PULMONARY DISEASE [None]
  - HYPERTENSION [None]
  - DRUG INEFFECTIVE [None]
  - FIBROMYALGIA [None]
  - ARTHRITIS [None]
  - EYELID OPERATION [None]
